FAERS Safety Report 15967357 (Version 1)
Quarter: 2019Q1

REPORT INFORMATION
  Report Type: Spontaneous
  Country: None (occurrence: US)
  Receive Date: 20190215
  Receipt Date: 20190215
  Transmission Date: 20190418
  Serious: No
  Sender: FDA-Public Use
  Company Number: US-MEDAC PHARMA, INC.-2062729

PATIENT
  Age: 65 Year
  Sex: Female
  Weight: 65.91 kg

DRUGS (3)
  1. ZOLOFT [Concomitant]
     Active Substance: SERTRALINE HYDROCHLORIDE
  2. RASUVO [Suspect]
     Active Substance: METHOTREXATE SODIUM
     Indication: RHEUMATOID ARTHRITIS
     Route: 051
     Dates: start: 2016, end: 20190112
  3. LEVOTHYROXINE. [Concomitant]
     Active Substance: LEVOTHYROXINE

REACTIONS (3)
  - Rash pruritic [Not Recovered/Not Resolved]
  - Trigger finger [Not Recovered/Not Resolved]
  - Skin burning sensation [Not Recovered/Not Resolved]
